FAERS Safety Report 11330391 (Version 1)
Quarter: 2015Q3

REPORT INFORMATION
  Report Type: Spontaneous
  Country: US (occurrence: None)
  Receive Date: 20150803
  Receipt Date: 20150803
  Transmission Date: 20151125
  Serious: Yes (Life-Threatening)
  Sender: FDA-Public Use
  Company Number: None

PATIENT
  Age: 36 Year
  Sex: Female
  Weight: 68.04 kg

DRUGS (3)
  1. GAVAPENTIN [Concomitant]
  2. RU486 [Suspect]
     Active Substance: MIFEPRISTONE
     Indication: ABORTION
     Route: 067
     Dates: start: 20150703, end: 20150705
  3. BENADRYL [Concomitant]
     Active Substance: DIPHENHYDRAMINE HYDROCHLORIDE

REACTIONS (9)
  - Haemorrhage [None]
  - Anaemia [None]
  - Retained products of conception [None]
  - Crying [None]
  - Feeling abnormal [None]
  - Fatigue [None]
  - Blood iron decreased [None]
  - Breast pain [None]
  - Pregnancy test positive [None]

NARRATIVE: CASE EVENT DATE: 20150718
